FAERS Safety Report 6808880-7 (Version None)
Quarter: 2010Q2

REPORT INFORMATION
  Report Type: 
  Country: None (occurrence: None)
  Receive Date: 20100630
  Receipt Date: 20091028
  Transmission Date: 20101027
  Serious: No
  Sender: FDA-Public Use
  Company Number: US-PFIZER INC-2009266637

PATIENT
  Sex: Male
  Weight: 101 kg

DRUGS (15)
  1. TIKOSYN [Suspect]
     Indication: ATRIAL FIBRILLATION
     Dosage: 500 UG, 2X/DAY
     Route: 048
     Dates: start: 20090626
  2. LASIX [Suspect]
     Indication: FLUID RETENTION
     Dates: start: 20090601, end: 20090101
  3. COZAAR [Concomitant]
  4. LISINOPRIL [Concomitant]
     Indication: BLOOD PRESSURE
  5. OMEPRAZOLE [Concomitant]
     Dosage: UNK
  6. CUMADIN [Concomitant]
     Indication: COAGULOPATHY
     Dosage: UNK
  7. TAMSULOSIN HCL [Concomitant]
     Indication: HYPERTENSION
     Dosage: 0.4 MG, UNK
  8. CELECOXIB [Concomitant]
     Dosage: UNK
  9. COSOPT [Concomitant]
     Indication: GLAUCOMA
     Dosage: UNK
  10. CRESTOR [Concomitant]
     Dosage: UNK
  11. TOPROL-XL [Concomitant]
     Dosage: UNK
  12. GLIPIZIDE [Concomitant]
     Indication: DIABETES MELLITUS
     Dosage: UNK
  13. METFORMIN [Concomitant]
     Indication: DIABETES MELLITUS
     Dosage: UNK
  14. VITAMINS [Concomitant]
     Dosage: UNK
  15. COREG [Concomitant]
     Indication: CARDIAC FAILURE CONGESTIVE
     Dosage: UNK
     Dates: start: 20090601

REACTIONS (2)
  - ATRIAL FIBRILLATION [None]
  - WEIGHT DECREASED [None]
